FAERS Safety Report 9331335 (Version 1)
Quarter: 2013Q2

REPORT INFORMATION
  Report Type: Spontaneous
  Country: AD (occurrence: US)
  Receive Date: 20130605
  Receipt Date: 20130605
  Transmission Date: 20140414
  Serious: No
  Sender: FDA-Public Use
  Company Number: US-TARO-2012P1018169

PATIENT
  Age: 3 Year
  Sex: Female
  Weight: 15.88 kg

DRUGS (2)
  1. CETIRIZINE HCL ORAL SOLUTION ALLERGY 1 MG/ML OTC [Suspect]
     Indication: SEASONAL ALLERGY
     Dates: start: 20120415, end: 20120422
  2. CETIRIZINE HCL ORAL SOLUTION ALLERGY 1 MG/ML OTC [Suspect]
     Indication: SEASONAL ALLERGY
     Dates: start: 20120422

REACTIONS (2)
  - Hypersensitivity [Not Recovered/Not Resolved]
  - Drug ineffective [Not Recovered/Not Resolved]
